FAERS Safety Report 6032114-7 (Version None)
Quarter: 2009Q1

REPORT INFORMATION
  Report Type: 
  Country: None (occurrence: None)
  Receive Date: 20090108
  Receipt Date: 20051222
  Transmission Date: 20090719
  Serious: Yes (Other)
  Sender: FDA-Public Use
  Company Number: SG-PFIZER INC-2008159886

PATIENT

DRUGS (6)
  1. CELECOXIB [Suspect]
     Indication: ADENOMATOUS POLYPOSIS COLI
     Dosage: 400 MG, 1X/DAY
     Dates: start: 20011019, end: 20040510
  2. CELECOXIB [Suspect]
     Indication: NEOPLASM PROPHYLAXIS
  3. FAMOTIDINE [Concomitant]
     Dosage: UNK
     Dates: start: 20040305
  4. LOVASTATIN [Concomitant]
     Dosage: UNK
     Dates: start: 20040430
  5. FUROSEMIDE [Concomitant]
     Dosage: UNK
     Dates: start: 20040430
  6. GLIPIZIDE [Concomitant]
     Dosage: UNK
     Dates: start: 20040423

REACTIONS (1)
  - MYOCARDIAL ISCHAEMIA [None]
